FAERS Safety Report 24918772 (Version 1)
Quarter: 2025Q1

REPORT INFORMATION
  Report Type: Spontaneous
  Country: JP (occurrence: JP)
  Receive Date: 20250204
  Receipt Date: 20250204
  Transmission Date: 20250408
  Serious: Yes (Other)
  Sender: KVK-TECH
  Company Number: JP-KVK-TECH, INC-20250100011

PATIENT
  Age: 15 Year
  Sex: Male

DRUGS (2)
  1. ATOVAQUONE [Suspect]
     Active Substance: ATOVAQUONE
     Indication: Pneumocystis jirovecii pneumonia
     Route: 048
  2. CYCLOSPORINE [Concomitant]
     Active Substance: CYCLOSPORINE
     Indication: Pneumocystis jirovecii pneumonia
     Route: 048

REACTIONS (1)
  - Corneal opacity [Not Recovered/Not Resolved]
